FAERS Safety Report 25656817 (Version 2)
Quarter: 2025Q4

REPORT INFORMATION
  Report Type: Spontaneous
  Country: JP (occurrence: JP)
  Receive Date: 20250807
  Receipt Date: 20251016
  Transmission Date: 20260117
  Serious: Yes (Life-Threatening, Hospitalization, Other)
  Sender: MERCK SHARP & DOHME LLC
  Company Number: JP-009507513-2316136

PATIENT
  Age: 65 Year
  Sex: Male

DRUGS (2)
  1. KEYTRUDA [Suspect]
     Active Substance: PEMBROLIZUMAB
     Indication: Transitional cell cancer of the renal pelvis and ureter
     Route: 041
     Dates: start: 202503, end: 202504
  2. PADCEV [Suspect]
     Active Substance: ENFORTUMAB VEDOTIN-EJFV
     Indication: Transitional cell cancer of the renal pelvis and ureter
     Route: 041
     Dates: start: 202503, end: 202504

REACTIONS (6)
  - Hepatic failure [Unknown]
  - Immune-mediated enterocolitis [Unknown]
  - Malignant neoplasm progression [Unknown]
  - Cholangitis infective [Unknown]
  - Immune-mediated cholangitis [Not Recovered/Not Resolved]
  - Biliary dilatation [Unknown]

NARRATIVE: CASE EVENT DATE: 20250101
